FAERS Safety Report 5406118-9 (Version None)
Quarter: 2007Q3

REPORT INFORMATION
  Report Type: 
  Country: None (occurrence: None)
  Receive Date: 20070802
  Receipt Date: 20070726
  Transmission Date: 20080115
  Serious: Yes (Life-Threatening, Hospitalization)
  Sender: FDA-Public Use
  Company Number: 2007-02992

PATIENT
  Age: 42 Year
  Sex: Female

DRUGS (10)
  1. TRELSTAR LA (WITH CLIP'N'JET) (WATSON LABORATORIES) (TRIPTORELIN PAMOA [Suspect]
     Indication: IRON DEFICIENCY ANAEMIA
     Dosage: 11.25 MG, 1 IN 3 M, INTRAMUSCULAR
     Route: 030
     Dates: start: 20070608, end: 20070608
  2. TRELSTAR LA (WITH CLIP'N'JET) (WATSON LABORATORIES) (TRIPTORELIN PAMOA [Suspect]
     Indication: METRORRHAGIA
     Dosage: 11.25 MG, 1 IN 3 M, INTRAMUSCULAR
     Route: 030
     Dates: start: 20070608, end: 20070608
  3. CORTANCYL [Concomitant]
  4. AMLODIPINE BESYLATE [Concomitant]
  5. VALSARTAN [Concomitant]
  6. ELISOR [Concomitant]
  7. LANTUS [Concomitant]
  8. NEXIUM [Concomitant]
  9. PROGRAF [Concomitant]
  10. CELLCEPT [Concomitant]

REACTIONS (5)
  - ABDOMINAL PAIN [None]
  - HAEMODIALYSIS [None]
  - KIDNEY TRANSPLANT REJECTION [None]
  - RENAL ARTERY THROMBOSIS [None]
  - RENAL FAILURE ACUTE [None]
